FAERS Safety Report 9858045 (Version 1)
Quarter: 2014Q1

REPORT INFORMATION
  Report Type: Report from Study
  Country: BR (occurrence: BR)
  Receive Date: 20140131
  Receipt Date: 20140131
  Transmission Date: 20141002
  Serious: Yes (Death)
  Sender: FDA-Public Use
  Company Number: PHHY2014BR011068

PATIENT
  Sex: Female

DRUGS (3)
  1. FORASEQ [Suspect]
     Dosage: 1 DF (IN THE MORNING AND AT NIGHT)
  2. LOSARTAN [Suspect]
     Indication: CARDIAC DISORDER
     Dosage: UNK
  3. FUROSEMIDE [Suspect]
     Indication: CARDIAC DISORDER
     Dosage: UNK

REACTIONS (2)
  - Cardiac disorder [Fatal]
  - Fall [Unknown]
